FAERS Safety Report 11088827 (Version 3)
Quarter: 2016Q3

REPORT INFORMATION
  Report Type: Report from Study
  Country: US (occurrence: US)
  Receive Date: 20150504
  Receipt Date: 20160916
  Transmission Date: 20161109
  Serious: Yes (Hospitalization, Other)
  Sender: FDA-Public Use
  Company Number: US-SA-2015SA057495

PATIENT
  Age: 55 Year
  Sex: Female

DRUGS (2)
  1. LEMTRADA [Suspect]
     Active Substance: ALEMTUZUMAB
     Indication: MULTIPLE SCLEROSIS
     Route: 041
     Dates: start: 20160418, end: 20160420
  2. LEMTRADA [Suspect]
     Active Substance: ALEMTUZUMAB
     Indication: MULTIPLE SCLEROSIS
     Route: 041
     Dates: start: 20150413, end: 20150417

REACTIONS (17)
  - Globulins decreased [Unknown]
  - Pyrexia [Recovered/Resolved]
  - Immune system disorder [Unknown]
  - Fall [Unknown]
  - Pneumonia [Recovered/Resolved]
  - Lower limb fracture [Recovered/Resolved]
  - White blood cell count decreased [Not Recovered/Not Resolved]
  - Joint injury [Recovered/Resolved]
  - Asthenia [Recovered/Resolved]
  - Immunosuppression [Not Recovered/Not Resolved]
  - Foot fracture [Recovered/Resolved]
  - Urinary tract infection [Unknown]
  - Movement disorder [Not Recovered/Not Resolved]
  - Muscle spasticity [Not Recovered/Not Resolved]
  - Limb injury [Unknown]
  - Contusion [Unknown]
  - Joint injury [Unknown]

NARRATIVE: CASE EVENT DATE: 2015
